FAERS Safety Report 11753618 (Version 4)
Quarter: 2016Q1

REPORT INFORMATION
  Report Type: Report from Study
  Country: BR (occurrence: BR)
  Receive Date: 20151119
  Receipt Date: 20160310
  Transmission Date: 20160525
  Serious: Yes (Hospitalization, Other)
  Sender: FDA-Public Use
  Company Number: PHHY2015BR150228

PATIENT
  Age: 75 Year
  Sex: Female
  Weight: 48 kg

DRUGS (3)
  1. ACLASTA [Suspect]
     Active Substance: ZOLEDRONIC ACID
     Dosage: 5 MG, Q12MO
     Route: 042
     Dates: start: 20151021
  2. ACLASTA [Suspect]
     Active Substance: ZOLEDRONIC ACID
     Indication: OSTEOPOROSIS
     Dosage: 5 MG, Q12MO
     Route: 042
     Dates: start: 2007
  3. ACLASTA [Suspect]
     Active Substance: ZOLEDRONIC ACID
     Dosage: 5 MG, Q12MO
     Route: 042
     Dates: start: 2008

REACTIONS (5)
  - Femur fracture [Unknown]
  - Gait disturbance [Unknown]
  - Abdominal pain upper [Recovered/Resolved]
  - Dysphagia [Unknown]
  - Abdominal distension [Recovered/Resolved]

NARRATIVE: CASE EVENT DATE: 20160103
